FAERS Safety Report 18512596 (Version 1)
Quarter: 2020Q4

REPORT INFORMATION
  Report Type: Spontaneous
  Country: NO (occurrence: NO)
  Receive Date: 20201117
  Receipt Date: 20201117
  Transmission Date: 20210114
  Serious: Yes (Hospitalization)
  Sender: FDA-Public Use
  Company Number: NO-BAUSCH-BL-2020-032344

PATIENT
  Age: 33 Year
  Sex: Male
  Weight: 102 kg

DRUGS (3)
  1. TROPICAMIDE MINIMS BAUSCH AND LOMB [Suspect]
     Active Substance: TROPICAMIDE
     Indication: MYDRIASIS
  2. TROPICAMIDE MINIMS BAUSCH AND LOMB [Suspect]
     Active Substance: TROPICAMIDE
     Indication: OPHTHALMOLOGICAL EXAMINATION
     Dosage: PATIENT WAS NOT SURE IF IT WAS ONE OR MORE DROPS.
     Route: 065
     Dates: start: 20190403, end: 20190403
  3. PANTOPRAZOL KRKA [Concomitant]
     Active Substance: PANTOPRAZOLE
     Indication: PRODUCT USED FOR UNKNOWN INDICATION
     Dates: start: 20160101, end: 20200101

REACTIONS (2)
  - Presyncope [Unknown]
  - Syncope [Recovered/Resolved]

NARRATIVE: CASE EVENT DATE: 20190403
